FAERS Safety Report 9605946 (Version 2)
Quarter: 2013Q4

REPORT INFORMATION
  Report Type: Report from Study
  Country: ES (occurrence: ES)
  Receive Date: 20131008
  Receipt Date: 20131008
  Transmission Date: 20140711
  Serious: Yes (Death, Hospitalization, Other)
  Sender: FDA-Public Use
  Company Number: ES-ROCHE-1265823

PATIENT
  Age: 26 Year
  Sex: Male

DRUGS (4)
  1. RIBAVIRIN [Suspect]
     Indication: HEPATITIS C
     Dosage: SPLIT DOSE OF 800 MG IN MORNING AND EVENING.
     Route: 048
  2. PEG-INTERFERON ALFA 2A [Suspect]
     Indication: HEPATITIS C
     Route: 058
     Dates: start: 20130628, end: 20130801
  3. SOFOSBUVIR [Suspect]
     Indication: HEPATITIS C
     Route: 048
     Dates: start: 20130618
  4. LINEZOLID [Concomitant]
     Route: 065
     Dates: start: 20130730

REACTIONS (2)
  - Lung abscess [Not Recovered/Not Resolved]
  - Liver transplant rejection [Fatal]
